FAERS Safety Report 10614008 (Version 3)
Quarter: 2015Q1

REPORT INFORMATION
  Report Type: Report from Study
  Country: CA (occurrence: CA)
  Receive Date: 20141128
  Receipt Date: 20150126
  Transmission Date: 20150720
  Serious: Yes (Hospitalization)
  Sender: FDA-Public Use
  Company Number: CA-BRISTOL-MYERS SQUIBB COMPANY-21625850

PATIENT
  Age: 83 Year
  Sex: Female

DRUGS (3)
  1. TYLENOL [Concomitant]
     Active Substance: ACETAMINOPHEN
  2. ABATACEPT [Suspect]
     Active Substance: ABATACEPT
     Indication: RHEUMATOID ARTHRITIS
     Dosage: 500 MG, Q4WK
     Route: 042
     Dates: start: 20120305
  3. AMOXIL [Concomitant]
     Active Substance: AMOXICILLIN

REACTIONS (3)
  - Decreased appetite [Recovering/Resolving]
  - Dehydration [Unknown]
  - Communication disorder [Unknown]

NARRATIVE: CASE EVENT DATE: 201411
